FAERS Safety Report 9602439 (Version 1)
Quarter: 2013Q4

REPORT INFORMATION
  Report Type: Spontaneous
  Country: US (occurrence: US)
  Receive Date: 20131007
  Receipt Date: 20131007
  Transmission Date: 20140711
  Serious: Yes (Other)
  Sender: FDA-Public Use
  Company Number: US-JNJFOC-20130917006

PATIENT
  Sex: Male

DRUGS (2)
  1. XARELTO [Suspect]
     Indication: CEREBROVASCULAR ACCIDENT PROPHYLAXIS
     Dosage: END DATE OF XARELTO 20-SEP (YEAR UNSPECIFIED)
     Route: 048
  2. XARELTO [Suspect]
     Indication: ATRIAL FIBRILLATION
     Dosage: END DATE OF XARELTO 20-SEP (YEAR UNSPECIFIED)
     Route: 048

REACTIONS (5)
  - Creatinine renal clearance decreased [Unknown]
  - Cardio-respiratory arrest [Unknown]
  - Pericardial effusion [Unknown]
  - Haemoglobin decreased [Unknown]
  - Hypotension [Unknown]
